FAERS Safety Report 7009504-9 (Version None)
Quarter: 2010Q3

REPORT INFORMATION
  Report Type: 
  Country: None (occurrence: None)
  Receive Date: 20100903
  Receipt Date: 20090713
  Transmission Date: 20110219
  Serious: No
  Sender: FDA-Public Use
  Company Number: 2009-00393

PATIENT
  Age: 72 Year
  Sex: Male
  Weight: 87.9978 kg

DRUGS (7)
  1. ZICAM COLD REMEDY GEL SWABS [Suspect]
     Dosage: COUPLE DAYS
     Dates: start: 20070208, end: 20070208
  2. DILTIAZEM [Concomitant]
  3. ATENOLOL [Concomitant]
  4. TERAZOSIN HCL [Concomitant]
  5. LISINOPRIL [Concomitant]
  6. FINASTERIDE [Concomitant]
  7. ASPIRIN [Concomitant]

REACTIONS (1)
  - ANOSMIA [None]
